FAERS Safety Report 4311028-4 (Version None)
Quarter: 2004Q1

REPORT INFORMATION
  Report Type: 
  Country: None (occurrence: None)
  Receive Date: 20040302
  Receipt Date: 20040217
  Transmission Date: 20041129
  Serious: Yes (Hospitalization)
  Sender: FDA-Public Use
  Company Number: 192515

PATIENT
  Age: 42 Year
  Sex: Female

DRUGS (1)
  1. AVONEX [Suspect]
     Indication: MULTIPLE SCLEROSIS
     Dosage: 30 MCG QW IM
     Dates: end: 20040201

REACTIONS (8)
  - ABORTION SPONTANEOUS [None]
  - BODY TEMPERATURE INCREASED [None]
  - COMPLICATIONS OF MATERNAL EXPOSURE TO THERAPEUTIC DRUGS [None]
  - ECTOPIC PREGNANCY [None]
  - FALLOPIAN TUBE NEOPLASM [None]
  - MATERNAL DRUGS AFFECTING FOETUS [None]
  - OVARIAN NEOPLASM [None]
  - POLYP [None]
